FAERS Safety Report 20101256 (Version 1)
Quarter: 2021Q4

REPORT INFORMATION
  Report Type: Spontaneous
  Country: US (occurrence: None)
  Receive Date: 20211122
  Receipt Date: 20211122
  Transmission Date: 20220303
  Serious: Yes (Life-Threatening)
  Sender: FDA-Public Use
  Company Number: None

PATIENT
  Age: 56 Year
  Sex: Female
  Weight: 100 kg

DRUGS (2)
  1. PROLIA [Suspect]
     Active Substance: DENOSUMAB
     Indication: Senile osteoporosis
     Route: 058
     Dates: start: 20211119, end: 20211119
  2. PROLIA [Concomitant]
     Active Substance: DENOSUMAB
     Dates: start: 20211119, end: 20211119

REACTIONS (6)
  - Anaphylactic reaction [None]
  - Asthenia [None]
  - Injection site erythema [None]
  - Dyspnoea [None]
  - Hypoaesthesia [None]
  - Paraesthesia [None]

NARRATIVE: CASE EVENT DATE: 20211119
